FAERS Safety Report 4919688-1 (Version None)
Quarter: 2006Q1

REPORT INFORMATION
  Report Type: 
  Country: None (occurrence: None)
  Receive Date: 20060221
  Receipt Date: 20060208
  Transmission Date: 20060701
  Serious: Yes (Hospitalization)
  Sender: FDA-Public Use
  Company Number: 2006022168

PATIENT
  Age: 56 Year
  Sex: Female

DRUGS (12)
  1. ATARAX [Suspect]
     Indication: ILL-DEFINED DISORDER
     Dosage: 50 MG (1 D), ORAL
     Route: 048
     Dates: start: 20051009, end: 20051031
  2. POTASSIUM CHLORIDE [Suspect]
     Indication: ILL-DEFINED DISORDER
     Dates: start: 20051018
  3. AUGMENTIN '125' [Concomitant]
  4. LEVOFLOXACIN [Concomitant]
  5. VINCRISTINE [Suspect]
     Indication: HODGKIN'S DISEASE
     Dosage: INTRAVENOUS
     Route: 042
     Dates: start: 20051003, end: 20051018
  6. CIPROFLOXACIN [Suspect]
     Indication: ILL-DEFINED DISORDER
     Dosage: 400 MG (1 D), INTRAVENOUS
     Route: 042
     Dates: start: 20051009, end: 20051011
  7. NATULAN (PROCARBAZINE HYDROCHLORIDE) [Suspect]
     Indication: HODGKIN'S DISEASE
     Dosage: ORAL
     Route: 048
     Dates: start: 20051003, end: 20051023
  8. ACETAMINOPHEN [Suspect]
     Indication: VIRAL INFECTION
     Dosage: 3 GRAM (1 D), INTRAVENOUS
     Route: 042
     Dates: start: 20051009, end: 20051103
  9. ACETAMINOPHEN [Concomitant]
  10. OMEPRAZOLE [Concomitant]
  11. FUROSEMIDE [Concomitant]
  12. POTASSIUM CHLORIDE [Concomitant]

REACTIONS (16)
  - ALVEOLITIS ALLERGIC [None]
  - COUGH [None]
  - INTERSTITIAL LUNG DISEASE [None]
  - NIKOLSKY'S SIGN [None]
  - NORMOCHROMIC NORMOCYTIC ANAEMIA [None]
  - OBSTRUCTIVE AIRWAYS DISORDER [None]
  - PYREXIA [None]
  - RALES [None]
  - RASH PAPULAR [None]
  - RESPIRATORY FAILURE [None]
  - RESTRICTIVE PULMONARY DISEASE [None]
  - SKIN LESION [None]
  - SKIN NECROSIS [None]
  - SYSTEMIC INFLAMMATORY RESPONSE SYNDROME [None]
  - THROMBOCYTOPENIA [None]
  - TOXIC SKIN ERUPTION [None]
